FAERS Safety Report 10034106 (Version 2)
Quarter: 2014Q2

REPORT INFORMATION
  Report Type: Other
  Country: IT (occurrence: IT)
  Receive Date: 20140325
  Receipt Date: 20140423
  Transmission Date: 20141212
  Serious: Yes (Hospitalization)
  Sender: FDA-Public Use
  Company Number: IT-SUN PHARMACEUTICAL INDUSTRIES LTD-2014SUN00704

PATIENT
  Sex: 0

DRUGS (7)
  1. OXALIPLATINO SUN 5 MG/ML, CONCENTRATO PER SOLUZIONE PER INFUSIONE [Suspect]
     Indication: RECTAL ADENOCARCINOMA
     Dosage: 130 MG, CYCLIC
     Route: 042
     Dates: start: 20140113, end: 20140212
  2. FLUOROURACIL [Concomitant]
     Indication: RECTAL ADENOCARCINOMA
     Dosage: 1525 MG, UNK
     Dates: start: 20140113, end: 20140212
  3. LANSOPRAZOLE [Concomitant]
     Indication: PROPHYLAXIS AGAINST GASTROINTESTINAL ULCER
     Dosage: 30 MG, UNK
     Route: 048
  4. LOZID [Concomitant]
     Indication: HYPERTENSION
     Dosage: 1 DF, UNK
     Route: 048
  5. KIPLING [Concomitant]
     Indication: ORAL CONTRACEPTION
     Dosage: 1 DF, UNK
     Route: 048
  6. ZOFRAN [Concomitant]
     Indication: PROPHYLAXIS OF NAUSEA AND VOMITING
     Dosage: 24 MG, UNK
     Route: 048
     Dates: start: 20140113, end: 20140212
  7. IMODIUM [Concomitant]
     Indication: DIARRHOEA
     Dosage: 2 MG, UNK
     Route: 048

REACTIONS (3)
  - Laryngospasm [Recovered/Resolved]
  - Erythema [Recovered/Resolved]
  - Nausea [Recovered/Resolved]
